FAERS Safety Report 9416123 (Version 2)
Quarter: 2013Q4

REPORT INFORMATION
  Report Type: Spontaneous
  Country: FR (occurrence: FR)
  Receive Date: 20130724
  Receipt Date: 20131122
  Transmission Date: 20140711
  Serious: Yes (Hospitalization)
  Sender: FDA-Public Use
  Company Number: FR-ASTRAZENECA-2013SE52817

PATIENT
  Age: 28980 Day
  Sex: Male

DRUGS (9)
  1. INEXIUM [Suspect]
     Route: 048
  2. COKENZEN [Suspect]
     Dosage: 8 MG/15.5 MG 1 DF EVERY DAY
     Route: 048
  3. AMLOR [Suspect]
     Route: 048
     Dates: end: 20130513
  4. AMLOR [Suspect]
     Route: 048
     Dates: start: 20130514
  5. KARDEGIC [Suspect]
     Route: 048
  6. DETENSIEL [Suspect]
     Route: 048
     Dates: end: 20130511
  7. DETENSIEL [Suspect]
     Route: 048
     Dates: start: 20130513
  8. MECIR [Suspect]
     Route: 048
     Dates: end: 20130511
  9. UVEDOSE [Concomitant]

REACTIONS (4)
  - Orthostatic hypotension [Recovered/Resolved]
  - Loss of consciousness [Unknown]
  - Abdominal pain upper [Unknown]
  - Vomiting [Unknown]
